FAERS Safety Report 25053334 (Version 2)
Quarter: 2025Q2

REPORT INFORMATION
  Report Type: Spontaneous
  Country: US (occurrence: US)
  Receive Date: 20250307
  Receipt Date: 20250602
  Transmission Date: 20250717
  Serious: No
  Sender: SANOFI AVENTIS
  Company Number: US-SA-2025SA064441

PATIENT
  Age: 76 Year
  Sex: Female
  Weight: 70.45 kg

DRUGS (30)
  1. DUPIXENT [Suspect]
     Active Substance: DUPILUMAB
     Indication: Asthma
     Dosage: 300 MG, QOW
     Route: 058
  2. DAILY VITE [ASCORBIC ACID;CALCIUM PANTOTHENATE;COLECALCIFEROL;CYANOCOB [Concomitant]
  3. RIZATRIPTAN [Concomitant]
     Active Substance: RIZATRIPTAN
  4. LAMICTAL [Concomitant]
     Active Substance: LAMOTRIGINE
  5. ALLEGRA ALLERGY [Concomitant]
     Active Substance: FEXOFENADINE HYDROCHLORIDE
  6. SPIRIVA RESPIMAT [Concomitant]
     Active Substance: TIOTROPIUM BROMIDE
  7. FOSAMAX [Concomitant]
     Active Substance: ALENDRONATE SODIUM
  8. CYCLOBENZAPRINE HYDROCHLORIDE [Concomitant]
     Active Substance: CYCLOBENZAPRINE HYDROCHLORIDE
  9. PROCHLORPERAZINE EDISYLATE [Concomitant]
     Active Substance: PROCHLORPERAZINE EDISYLATE
  10. PEPCID AC [Concomitant]
     Active Substance: FAMOTIDINE
  11. MUCINEX [Concomitant]
     Active Substance: GUAIFENESIN
  12. ROSUVASTATIN CALCIUM [Concomitant]
     Active Substance: ROSUVASTATIN CALCIUM
  13. TRIAMTERENE AND HYDROCHLOROTHIAZIDE [Concomitant]
     Active Substance: HYDROCHLOROTHIAZIDE\TRIAMTERENE
  14. CYMBALTA [Concomitant]
     Active Substance: DULOXETINE HYDROCHLORIDE
  15. LEVOTHYROXINE SODIUM [Concomitant]
     Active Substance: LEVOTHYROXINE SODIUM
  16. SODIUM CHLORIDE [Concomitant]
     Active Substance: SODIUM CHLORIDE
  17. WAL DRYL [Concomitant]
  18. ALBUTEROL SULFATE [Concomitant]
     Active Substance: ALBUTEROL SULFATE
  19. CALCIUM [Concomitant]
     Active Substance: CALCIUM
  20. NEXIUM [Concomitant]
     Active Substance: ESOMEPRAZOLE MAGNESIUM
  21. GUAIFENESIN [Concomitant]
     Active Substance: GUAIFENESIN
  22. ALBUTEROL SULFATE [Concomitant]
     Active Substance: ALBUTEROL SULFATE
  23. VITAMIN C [Concomitant]
     Active Substance: ASCORBIC ACID
  24. SINGULAIR [Concomitant]
     Active Substance: MONTELUKAST SODIUM
  25. VITAMIN D3 [Concomitant]
     Active Substance: CHOLECALCIFEROL
  26. PREDNISONE [Concomitant]
     Active Substance: PREDNISONE
  27. VITAMINS NOS [Concomitant]
     Active Substance: VITAMINS
  28. COZAAR [Concomitant]
     Active Substance: LOSARTAN POTASSIUM
  29. TRAZODONE HCL [Concomitant]
     Active Substance: TRAZODONE HYDROCHLORIDE
  30. ADVAIR HFA [Concomitant]
     Active Substance: FLUTICASONE PROPIONATE\SALMETEROL XINAFOATE

REACTIONS (3)
  - Injection site bruising [Unknown]
  - Bronchitis [Recovering/Resolving]
  - Sinus disorder [Recovering/Resolving]

NARRATIVE: CASE EVENT DATE: 20250501
